FAERS Safety Report 14849371 (Version 13)
Quarter: 2025Q2

REPORT INFORMATION
  Report Type: Report from Study
  Country: MX (occurrence: MX)
  Receive Date: 20180504
  Receipt Date: 20250507
  Transmission Date: 20250717
  Serious: Yes (Other)
  Sender: NOVARTIS
  Company Number: PHHY2018MX077074

PATIENT
  Age: 59 Year
  Sex: Male

DRUGS (3)
  1. EXFORGE HCT [Suspect]
     Active Substance: AMLODIPINE BESYLATE\HYDROCHLOROTHIAZIDE\VALSARTAN
     Indication: Blood pressure increased
     Dosage: 1 DOSAGE FORM, QD
     Route: 048
     Dates: start: 201706
  2. EXFORGE HCT [Suspect]
     Active Substance: AMLODIPINE BESYLATE\HYDROCHLOROTHIAZIDE\VALSARTAN
     Indication: Hypertension
  3. SUTENT [Concomitant]
     Active Substance: SUNITINIB MALATE
     Indication: Product used for unknown indication
     Route: 065

REACTIONS (23)
  - Renal cancer [Unknown]
  - Dental discomfort [Unknown]
  - Brain abscess [Unknown]
  - Depressed mood [Unknown]
  - Renal disorder [Unknown]
  - Blood pressure abnormal [Unknown]
  - Onychalgia [Unknown]
  - Abscess limb [Unknown]
  - Discomfort [Unknown]
  - Gait disturbance [Unknown]
  - Semen discolouration [Unknown]
  - Agitation [Unknown]
  - Adverse reaction [Unknown]
  - Pain [Unknown]
  - Abdominal discomfort [Unknown]
  - Malaise [Unknown]
  - Headache [Unknown]
  - Fatigue [Unknown]
  - Mediastinum neoplasm [Not Recovered/Not Resolved]
  - Neoplasm [Unknown]
  - Skin reaction [Recovered/Resolved]
  - Rash [Recovered/Resolved]
  - Skin irritation [Recovered/Resolved]

NARRATIVE: CASE EVENT DATE: 20180423
